FAERS Safety Report 22955081 (Version 3)
Quarter: 2023Q4

REPORT INFORMATION
  Report Type: Spontaneous
  Country: US (occurrence: US)
  Receive Date: 20230918
  Receipt Date: 20231130
  Transmission Date: 20240109
  Serious: Yes (Other)
  Sender: FDA-Public Use
  Company Number: US-PFIZER INC-2020018566

PATIENT
  Age: 83 Year
  Sex: Female
  Weight: 107.95 kg

DRUGS (4)
  1. IBRANCE [Suspect]
     Active Substance: PALBOCICLIB
     Indication: Breast cancer female
     Dosage: 125 MG, DAILY
     Route: 048
     Dates: start: 20180927
  2. IBRANCE [Suspect]
     Active Substance: PALBOCICLIB
     Dosage: ONCE DAILY WITH FOOD, 21 DAYS ON, 7 DAYS OFF
     Route: 048
     Dates: start: 20221215
  3. IBRANCE [Suspect]
     Active Substance: PALBOCICLIB
     Dosage: 125 MG
     Route: 048
  4. IBRANCE [Suspect]
     Active Substance: PALBOCICLIB
     Indication: Breast cancer female
     Dosage: 125 MG TABLET ORAL DAILY FOR 21 DAYS
     Route: 048
     Dates: start: 20230530, end: 20230822

REACTIONS (3)
  - Femur fracture [Unknown]
  - Fracture delayed union [Unknown]
  - Blood iron decreased [Unknown]
